FAERS Safety Report 17215744 (Version 1)
Quarter: 2019Q4

REPORT INFORMATION
  Report Type: Spontaneous
  Country: BR (occurrence: BR)
  Receive Date: 20191230
  Receipt Date: 20191230
  Transmission Date: 20200122
  Serious: Yes (Other)
  Sender: FDA-Public Use
  Company Number: BR-PURDUE PHARMA-GBR-2019-0073650

PATIENT
  Sex: Female

DRUGS (4)
  1. VALTREX [Concomitant]
     Active Substance: VALACYCLOVIR HYDROCHLORIDE
     Dosage: 500 MG, BID
  2. OXYCONTIN [Suspect]
     Active Substance: OXYCODONE HYDROCHLORIDE
     Indication: PAIN MANAGEMENT
     Dosage: 10 MG, BID (STRENGHT 10MG)
     Route: 065
     Dates: start: 20191112
  3. OXYCONTIN [Suspect]
     Active Substance: OXYCODONE HYDROCHLORIDE
     Dosage: 1 TABLET, TID  (WHEN SHE HAD CHEMOTHERAPY, 1 TABLET THREE TIMES A DAY)(STRENGHT 10MG)
     Route: 065
  4. GABAPENTINE [Concomitant]
     Active Substance: GABAPENTIN
     Indication: PAIN
     Dosage: 300 MG, TID

REACTIONS (6)
  - Herpes virus infection [Unknown]
  - Dizziness [Unknown]
  - Pain [Recovering/Resolving]
  - Sedation [Unknown]
  - Vomiting [Recovering/Resolving]
  - Vaginal haemorrhage [Unknown]

NARRATIVE: CASE EVENT DATE: 20191202
